FAERS Safety Report 4708679-1 (Version None)
Quarter: 2005Q3

REPORT INFORMATION
  Report Type: 
  Country: None (occurrence: None)
  Receive Date: 20050705
  Receipt Date: 20050629
  Transmission Date: 20060218
  Serious: Yes (Life-Threatening, Hospitalization)
  Sender: FDA-Public Use
  Company Number: 2005-129970-NL

PATIENT
  Age: 32 Year
  Sex: Male

DRUGS (2)
  1. MIRTAZAPINE [Suspect]
     Indication: DEPRESSION
     Dosage: 30 MG QD
     Dates: start: 20050624, end: 20050625
  2. CITALOPRAM HYDROCHLORIDE [Concomitant]
     Indication: DEPRESSION

REACTIONS (3)
  - ABDOMINAL DISCOMFORT [None]
  - ANAPHYLACTIC REACTION [None]
  - DYSPNOEA [None]
